FAERS Safety Report 10365235 (Version 1)
Quarter: 2014Q3

REPORT INFORMATION
  Report Type: Spontaneous
  Country: BR (occurrence: BR)
  Receive Date: 20140806
  Receipt Date: 20140806
  Transmission Date: 20150326
  Serious: Yes (Other)
  Sender: FDA-Public Use
  Company Number: BR-PFIZER INC-2014214504

PATIENT
  Age: 80 Year
  Sex: Female
  Weight: 58 kg

DRUGS (1)
  1. XALATAN [Suspect]
     Active Substance: LATANOPROST
     Indication: GLAUCOMA
     Dosage: 1 DROP (1.5 UG) ONLY IN THE LEFT EYE AT NIGHT
     Route: 047
     Dates: start: 19940721

REACTIONS (3)
  - Cataract [Unknown]
  - Blindness unilateral [Not Recovered/Not Resolved]
  - Glaucoma [Unknown]
